FAERS Safety Report 9370211 (Version 2)
Quarter: 2013Q3

REPORT INFORMATION
  Report Type: Spontaneous
  Country: US (occurrence: US)
  Receive Date: 20130626
  Receipt Date: 20130807
  Transmission Date: 20140515
  Serious: Yes (Hospitalization)
  Sender: FDA-Public Use
  Company Number: US-UCBSA-068100

PATIENT
  Age: 51 Year
  Sex: Female
  Weight: 79.37 kg

DRUGS (4)
  1. CIMZIA [Suspect]
     Indication: RHEUMATOID ARTHRITIS
     Route: 058
     Dates: start: 20120927, end: 20121201
  2. ENDOCET [Concomitant]
     Indication: PAIN
     Dosage: 6 HOURS
  3. ZANFLEX [Concomitant]
     Indication: MUSCLE RELAXANT THERAPY
     Dosage: TWICE
  4. MELOXCAM [Concomitant]
     Dosage: 1 TIME

REACTIONS (11)
  - Dehydration [Recovered/Resolved]
  - Blood pressure decreased [Recovered/Resolved]
  - Shock [Unknown]
  - Asthenia [Unknown]
  - Renal failure [Recovered/Resolved]
  - Injection site swelling [Recovered/Resolved]
  - Burning sensation [Not Recovered/Not Resolved]
  - Needle issue [Recovered/Resolved]
  - Pain [Not Recovered/Not Resolved]
  - Muscle spasms [Unknown]
  - Joint swelling [Not Recovered/Not Resolved]
